FAERS Safety Report 11797280 (Version 1)
Quarter: 2015Q4

REPORT INFORMATION
  Report Type: Spontaneous
  Country: US (occurrence: US)
  Receive Date: 20151203
  Receipt Date: 20151203
  Transmission Date: 20160305
  Serious: No
  Sender: FDA-Public Use
  Company Number: US-009507513-1511USA014796

PATIENT
  Age: 37 Year
  Sex: Female
  Weight: 102.95 kg

DRUGS (2)
  1. NEXPLANON [Suspect]
     Active Substance: ETONOGESTREL
     Dosage: 1 ROD, LEFT ARM
     Dates: start: 20151130
  2. NEXPLANON [Suspect]
     Active Substance: ETONOGESTREL
     Dosage: 1 ROD, RIGHT ARM
     Route: 023
     Dates: start: 20151113, end: 20151125

REACTIONS (5)
  - Device difficult to use [Unknown]
  - Implant site erythema [Recovering/Resolving]
  - Device expulsion [Recovered/Resolved]
  - Implant site pain [Unknown]
  - Incorrect route of drug administration [Unknown]

NARRATIVE: CASE EVENT DATE: 201511
